FAERS Safety Report 7270662-2 (Version None)
Quarter: 2011Q1

REPORT INFORMATION
  Report Type: 
  Country: None (occurrence: None)
  Receive Date: 20110202
  Receipt Date: 20110126
  Transmission Date: 20110831
  Serious: Yes (Congenital Anomaly)
  Sender: FDA-Public Use
  Company Number: A0911185A

PATIENT
  Sex: Male
  Weight: 3.1 kg

DRUGS (1)
  1. PAXIL [Suspect]
     Indication: PRODUCT USED FOR UNKNOWN INDICATION
     Route: 064

REACTIONS (7)
  - DRUG EXPOSURE DURING PREGNANCY [None]
  - MATERNAL DRUGS AFFECTING FOETUS [None]
  - DYSPNOEA [None]
  - CARDIAC MURMUR [None]
  - CHEST PAIN [None]
  - NAUSEA [None]
  - TRICUSPID VALVE INCOMPETENCE [None]
